FAERS Safety Report 18377750 (Version 1)
Quarter: 2020Q4

REPORT INFORMATION
  Report Type: Spontaneous
  Country: US (occurrence: US)
  Receive Date: 20201013
  Receipt Date: 20201013
  Transmission Date: 20210114
  Serious: No
  Sender: FDA-Public Use
  Company Number: US-ALLERGAN-2026270US

PATIENT
  Age: 67 Year
  Sex: Male

DRUGS (2)
  1. UBRELVY [Suspect]
     Active Substance: UBROGEPANT
     Dosage: 50 MG THEN ANOTHER DOSE WITHIN 2 HOURS
     Route: 048
     Dates: start: 20200608
  2. UBRELVY [Suspect]
     Active Substance: UBROGEPANT
     Indication: MIGRAINE
     Dosage: 2 DF
     Route: 048
     Dates: start: 20200610

REACTIONS (3)
  - Rebound effect [Recovered/Resolved]
  - Migraine [Recovered/Resolved]
  - Therapeutic response decreased [Unknown]

NARRATIVE: CASE EVENT DATE: 20200609
